FAERS Safety Report 12307865 (Version 2)
Quarter: 2016Q3

REPORT INFORMATION
  Report Type: Spontaneous
  Country: CO (occurrence: CO)
  Receive Date: 20160426
  Receipt Date: 20160831
  Transmission Date: 20161109
  Serious: Yes (Other)
  Sender: FDA-Public Use
  Company Number: CO-BAUSCH-BL-2016-009490

PATIENT
  Age: 51 Year
  Sex: Female

DRUGS (3)
  1. DEXAMETHASONE. [Suspect]
     Active Substance: DEXAMETHASONE
     Indication: PRODUCT USED FOR UNKNOWN INDICATION
     Dosage: THIRD DOSE AT 22:00 HRS ON THE DAY OF THE PROCEDURE
     Route: 065
  2. DEXAMETHASONE. [Suspect]
     Active Substance: DEXAMETHASONE
     Dosage: STARTED ON POST-OPERATIVE DAY 2
     Route: 065
  3. DEXAMETHASONE. [Suspect]
     Active Substance: DEXAMETHASONE
     Dosage: WAS ADMINISTERED (7:30 HRS AND 17:00 HRS), DURING THE PROCEDURE
     Route: 065

REACTIONS (1)
  - Psychotic disorder [Recovered/Resolved]
